FAERS Safety Report 5647076-1 (Version None)
Quarter: 2008Q1

REPORT INFORMATION
  Report Type: 
  Country: None (occurrence: None)
  Receive Date: 20080303
  Receipt Date: 20080221
  Transmission Date: 20080703
  Serious: Yes (Other)
  Sender: FDA-Public Use
  Company Number: US-JNJFOC-20080206025

PATIENT
  Sex: Female
  Weight: 73.94 kg

DRUGS (18)
  1. FENTANYL TRANSDERMAL SYSTEM [Suspect]
     Route: 062
  2. FENTANYL TRANSDERMAL SYSTEM [Suspect]
     Indication: PAIN
     Route: 062
  3. DURAGESIC-100 [Suspect]
     Indication: PAIN
     Route: 062
  4. XANAX [Concomitant]
     Indication: ANXIETY
     Dosage: AS NEEDED
     Route: 048
  5. URISED [Concomitant]
     Indication: CYSTITIS INTERSTITIAL
     Dosage: AS NEEDED
     Route: 048
  6. DARVOCET-N 100 [Concomitant]
     Indication: BREAKTHROUGH PAIN
     Dosage: AS NEEDED
     Route: 048
  7. GUAIFENSEN [Concomitant]
     Indication: DRUG USE FOR UNKNOWN INDICATION
     Route: 048
  8. DIFLUCAN [Concomitant]
     Indication: CANDIDIASIS
     Route: 048
  9. BENTYL [Concomitant]
     Indication: IRRITABLE BOWEL SYNDROME
     Route: 048
  10. EFFEXOR XR [Concomitant]
     Indication: DEPRESSION
     Route: 048
  11. NEXIUM [Concomitant]
     Indication: GASTROOESOPHAGEAL REFLUX DISEASE
     Route: 048
  12. LIDODERM [Concomitant]
     Indication: TENDERNESS
     Route: 062
  13. INDERAL [Concomitant]
     Indication: TACHYCARDIA
     Dosage: AS NEEDED
     Route: 048
  14. ATENOLOL [Concomitant]
     Indication: TACHYCARDIA
     Route: 048
  15. CLONAZEPAM [Concomitant]
     Indication: RESTLESS LEGS SYNDROME
     Dosage: AS NEEDED
     Route: 048
  16. PHENERGAN HCL [Concomitant]
     Indication: IRRITABLE BOWEL SYNDROME
     Dosage: AS NEEDED
     Route: 048
  17. SYNTHROID [Concomitant]
     Indication: HYPOTHYROIDISM
     Route: 048
  18. ASPIRIN [Concomitant]
     Indication: CARDIOVASCULAR DISORDER
     Route: 048

REACTIONS (7)
  - DRUG EFFECT DECREASED [None]
  - HYPOTHYROIDISM [None]
  - INCORRECT DRUG ADMINISTRATION DURATION [None]
  - INSOMNIA [None]
  - OSTEOPOROSIS [None]
  - PRURITUS GENERALISED [None]
  - WEIGHT DECREASED [None]
